FAERS Safety Report 18551741 (Version 1)
Quarter: 2020Q4

REPORT INFORMATION
  Report Type: Report from Study
  Country: DE (occurrence: DE)
  Receive Date: 20201126
  Receipt Date: 20201126
  Transmission Date: 20210114
  Serious: Yes (Other)
  Sender: FDA-Public Use
  Company Number: PHHY2016DE151551

PATIENT
  Sex: Male
  Weight: 83 kg

DRUGS (13)
  1. PIOGLITAZON [Concomitant]
     Active Substance: PIOGLITAZONE HYDROCHLORIDE
     Indication: TYPE 2 DIABETES MELLITUS
     Dosage: 15 MG, QD (DAILY)
     Route: 048
     Dates: start: 20160101
  2. METFORMIN ^RATIOPHARM^ [Concomitant]
     Indication: TYPE 2 DIABETES MELLITUS
     Dosage: 850 MG, QD (DAILY)
     Route: 048
     Dates: start: 20160101
  3. OPDIVO [Suspect]
     Active Substance: NIVOLUMAB
     Dosage: 3 MG/KG
     Route: 042
     Dates: start: 20160902, end: 20160915
  4. OPDIVO [Suspect]
     Active Substance: NIVOLUMAB
     Dosage: 3 MG/KG
     Route: 042
     Dates: start: 20160930, end: 20161007
  5. HCT RATIOPHARM [Concomitant]
     Indication: HYPERTENSION
     Dosage: 25 MG, QD (DAILY)
     Route: 048
     Dates: start: 20160101
  6. VOTRIENT [Suspect]
     Active Substance: PAZOPANIB HYDROCHLORIDE
     Dosage: 400 MG, QD
     Route: 048
     Dates: start: 20160707, end: 20160718
  7. PANTOPRAZOLE RATIOPHARM [Concomitant]
     Indication: PROPHYLAXIS
     Dosage: 20 MG, QD (DAILY)
     Route: 048
     Dates: start: 20160101
  8. MOXONIDIN RATIOPHARM [Concomitant]
     Indication: HYPERTENSION
     Dosage: 0.3 MG, QD (DAILY)
     Route: 048
     Dates: start: 20160101
  9. FELODIPINE RATIOPHARM [Concomitant]
     Indication: HYPERTENSION
     Dosage: 5 MG, QD (DAILY)
     Route: 048
     Dates: start: 20160101
  10. VOTRIENT [Suspect]
     Active Substance: PAZOPANIB HYDROCHLORIDE
     Indication: METASTATIC RENAL CELL CARCINOMA
     Dosage: 800 MG, QD
     Route: 048
     Dates: start: 20160503, end: 20160608
  11. OPDIVO [Suspect]
     Active Substance: NIVOLUMAB
     Dosage: 3 MG/KG
     Route: 042
     Dates: start: 20160819, end: 20160901
  12. OPDIVO [Suspect]
     Active Substance: NIVOLUMAB
     Indication: METASTATIC RENAL CELL CARCINOMA
     Dosage: 3 MG/KG, QD
     Route: 042
     Dates: start: 20160815, end: 20160930
  13. OPDIVO [Suspect]
     Active Substance: NIVOLUMAB
     Dosage: 3 MG/KG
     Route: 042
     Dates: start: 20160916, end: 20160929

REACTIONS (4)
  - Hypothyroidism [Recovered/Resolved]
  - Liver function test increased [Recovered/Resolved]
  - Liver function test increased [Recovered/Resolved]
  - Liver function test increased [Recovered/Resolved]

NARRATIVE: CASE EVENT DATE: 20160607
